FAERS Safety Report 4766649-1 (Version None)
Quarter: 2005Q3

REPORT INFORMATION
  Report Type: 
  Country: None (occurrence: None)
  Receive Date: 20050908
  Receipt Date: 20050831
  Transmission Date: 20060218
  Serious: Yes (Other)
  Sender: FDA-Public Use
  Company Number: 2005110990

PATIENT
  Age: 60 Year
  Sex: Male

DRUGS (4)
  1. ZOLOFT [Suspect]
     Indication: ANXIETY
     Dates: start: 20040825, end: 20050101
  2. SEROQUEL [Suspect]
     Indication: PSYCHOTIC DISORDER
     Dates: start: 20041201
  3. CARDIZEM [Concomitant]
  4. RISPERDAL [Concomitant]

REACTIONS (5)
  - DELUSION [None]
  - MENINGITIS [None]
  - PARANOIA [None]
  - PSYCHOTIC DISORDER [None]
  - SEROTONIN SYNDROME [None]
